FAERS Safety Report 7243651-1 (Version None)
Quarter: 2011Q1

REPORT INFORMATION
  Report Type: 
  Country: None (occurrence: None)
  Receive Date: 20110125
  Receipt Date: 20110119
  Transmission Date: 20110831
  Serious: Yes (Death)
  Sender: FDA-Public Use
  Company Number: PHHY2011US04382

PATIENT
  Sex: Female

DRUGS (1)
  1. TOBI [Suspect]
     Dosage: 300 MG/ 5 ML, BID 28 DAYS ON AND 28 DAYS OFF
     Dates: start: 20100625, end: 20100601

REACTIONS (1)
  - DEATH [None]
